FAERS Safety Report 6218029-X (Version None)
Quarter: 2009Q2

REPORT INFORMATION
  Report Type: 
  Country: None (occurrence: None)
  Receive Date: 20090608
  Receipt Date: 20090525
  Transmission Date: 20091009
  Serious: Yes (Hospitalization)
  Sender: FDA-Public Use
  Company Number: ES-ELI_LILLY_AND_COMPANY-ES200905005166

PATIENT
  Age: 81 Year
  Sex: Female

DRUGS (1)
  1. FORTEO [Suspect]
     Indication: OSTEOPOROSIS
     Dosage: 20 UG, UNK
     Route: 058
     Dates: start: 20090421, end: 20090516

REACTIONS (6)
  - ARTHRALGIA [None]
  - ATRIAL FIBRILLATION [None]
  - CHEST PAIN [None]
  - PRESYNCOPE [None]
  - PRURITUS GENERALISED [None]
  - TACHYCARDIA [None]
